FAERS Safety Report 18366485 (Version 7)
Quarter: 2021Q4

REPORT INFORMATION
  Report Type: Report from Study
  Country: GB (occurrence: GB)
  Receive Date: 20201009
  Receipt Date: 20211008
  Transmission Date: 20220303
  Serious: Yes (Other)
  Sender: FDA-Public Use
  Company Number: NVSC2020GB106465

PATIENT
  Age: 54 Year
  Sex: Female

DRUGS (5)
  1. SANDOSTATIN LAR DEPOT [Suspect]
     Active Substance: OCTREOTIDE ACETATE
     Indication: Acromegaly
     Dosage: 20 MG, Q4W
     Route: 030
  2. SANDOSTATIN LAR DEPOT [Suspect]
     Active Substance: OCTREOTIDE ACETATE
     Dosage: 20 MG, (EVERY 8 WEEKS)
     Route: 030
  3. SANDOSTATIN LAR DEPOT [Suspect]
     Active Substance: OCTREOTIDE ACETATE
  4. LEVOTHYROXINE [Concomitant]
     Active Substance: LEVOTHYROXINE
     Indication: Product used for unknown indication
     Dosage: 25 MG
     Route: 065
  5. LEVOTHYROXINE [Concomitant]
     Active Substance: LEVOTHYROXINE
     Dosage: 50 MG
     Route: 065

REACTIONS (20)
  - Nephrolithiasis [Unknown]
  - Balance disorder [Unknown]
  - Sinusitis [Unknown]
  - Fall [Unknown]
  - Contusion [Unknown]
  - Gait disturbance [Not Recovered/Not Resolved]
  - Arthralgia [Not Recovered/Not Resolved]
  - Orthostatic hypotension [Unknown]
  - Hiatus hernia [Unknown]
  - Feeling cold [Unknown]
  - Injury [Unknown]
  - Coordination abnormal [Unknown]
  - Nervousness [Unknown]
  - Rib fracture [Unknown]
  - Liver function test increased [Unknown]
  - Heart rate decreased [Unknown]
  - Dizziness [Unknown]
  - Dyspepsia [Unknown]
  - Headache [Unknown]
  - Inappropriate schedule of product administration [Unknown]

NARRATIVE: CASE EVENT DATE: 20200707
